FAERS Safety Report 12444760 (Version 1)
Quarter: 2016Q2

REPORT INFORMATION
  Report Type: Spontaneous
  Country: AU (occurrence: AU)
  Receive Date: 20160607
  Receipt Date: 20160607
  Transmission Date: 20160815
  Serious: Yes (Other)
  Sender: FDA-Public Use
  Company Number: AU-BRISTOL-MYERS SQUIBB COMPANY-BMS-2016-041851

PATIENT
  Sex: Male

DRUGS (2)
  1. HYDREA [Suspect]
     Active Substance: HYDROXYUREA
     Dosage: 500 MG, UNK ( 2 IN THE MORNING AND 2 AT NIGHT )
     Route: 048
     Dates: start: 201604
  2. HYDREA [Suspect]
     Active Substance: HYDROXYUREA
     Indication: ANTIPLATELET THERAPY
     Dosage: 500 MG, BID
     Route: 048
     Dates: start: 201603

REACTIONS (9)
  - Heart rate abnormal [Unknown]
  - Blood pressure diastolic decreased [Unknown]
  - Dyspnoea [Unknown]
  - Epistaxis [Unknown]
  - Scab [Unknown]
  - Device malfunction [Unknown]
  - Dizziness [Unknown]
  - Off label use [Unknown]
  - Muscular weakness [Unknown]
